FAERS Safety Report 6149890-5 (Version None)
Quarter: 2009Q2

REPORT INFORMATION
  Report Type: 
  Country: None (occurrence: None)
  Receive Date: 20090407
  Receipt Date: 20090328
  Transmission Date: 20091009
  Serious: Yes (Other)
  Sender: FDA-Public Use
  Company Number: CHPA2009US08152

PATIENT
  Age: 66 Year
  Sex: Male
  Weight: 77.1 kg

DRUGS (1)
  1. 4 WAY SALINE MOISTURIZING MIST (NCH) (NO [Suspect]
     Dosage: 2 SPRAYS, IN EACH NOSTRIL, NASAL
     Route: 045
     Dates: start: 20090301

REACTIONS (1)
  - HYPERTENSION [None]
